FAERS Safety Report 4543328-7 (Version None)
Quarter: 2004Q4

REPORT INFORMATION
  Report Type: 
  Country: None (occurrence: None)
  Receive Date: 20041229
  Receipt Date: 20041214
  Transmission Date: 20050328
  Serious: Yes (Hospitalization)
  Sender: FDA-Public Use
  Company Number: 2004GB00920

PATIENT
  Age: 39 Year
  Sex: Male

DRUGS (12)
  1. GEFITINIB [Suspect]
     Indication: COLORECTAL CANCER
     Dosage: 250 MG DAILY; PO
     Route: 048
     Dates: start: 20040130
  2. 5-FLOUROURACIL ^BIOSYN^ [Suspect]
     Indication: COLORECTAL CANCER
     Dosage: 628 MG DAILY; IV
     Route: 042
     Dates: start: 20040213
  3. 5-FLOUROURACIL ^BIOSYN^ [Suspect]
     Indication: COLORECTAL CANCER
     Dosage: 628 MG DAILY; IV
     Route: 042
     Dates: start: 20040227
  4. 5-FLOUROURACIL ^BIOSYN^ [Suspect]
     Indication: COLORECTAL CANCER
     Dosage: 628 MG DAILY; IV
     Route: 042
     Dates: start: 20040312
  5. LEUCOVORIN CALCIUM [Suspect]
     Indication: COLORECTAL CANCER
     Dosage: 350 MG DAILY; IV
     Route: 042
     Dates: start: 20040213
  6. LEUCOVORIN [Suspect]
     Indication: COLORECTAL CANCER
     Dosage: 350 MG DAILY; IV
     Route: 042
     Dates: start: 20040227
  7. LEUCOVORIN [Suspect]
     Indication: COLORECTAL CANCER
     Dosage: 350 MG DAILY; IV
     Route: 042
     Dates: start: 20040312
  8. ORAMORPH SR [Concomitant]
  9. MORPHINE SULFATE [Concomitant]
  10. ACETAMINOPHEN [Concomitant]
  11. IBUPROFEN [Concomitant]
  12. DIAMORPHINE [Concomitant]

REACTIONS (7)
  - ABDOMINAL PAIN [None]
  - DECREASED APPETITE [None]
  - DEHYDRATION [None]
  - HYPONATRAEMIA [None]
  - INTESTINAL OBSTRUCTION [None]
  - LETHARGY [None]
  - ORAL CANDIDIASIS [None]
